FAERS Safety Report 7904154-1 (Version None)
Quarter: 2011Q4

REPORT INFORMATION
  Report Type: 
  Country: None (occurrence: None)
  Receive Date: 20111109
  Receipt Date: 20111104
  Transmission Date: 20120403
  Serious: Yes (Hospitalization)
  Sender: FDA-Public Use
  Company Number: FR-PFIZER INC-2011269981

PATIENT
  Age: 3 Year
  Sex: Male
  Weight: 19.2 kg

DRUGS (3)
  1. JOSACIN [Concomitant]
     Indication: TONSILLITIS
  2. MAXILASE [Suspect]
     Indication: TONSILLITIS
     Dosage: UNK
     Route: 048
     Dates: start: 20110921, end: 20110924
  3. PEDIATRIC ADVIL [Suspect]
     Indication: TONSILLITIS
     Dosage: UNK
     Route: 048
     Dates: start: 20110921, end: 20110924

REACTIONS (2)
  - PNEUMONIA [None]
  - THORACIC CAVITY DRAINAGE [None]
